FAERS Safety Report 8435135-X (Version None)
Quarter: 2012Q2

REPORT INFORMATION
  Report Type: 
  Country: None (occurrence: None)
  Receive Date: 20120614
  Receipt Date: 20120611
  Transmission Date: 20120825
  Serious: Yes (Death, Hospitalization, Disabling)
  Sender: FDA-Public Use
  Company Number: PHHY2011JP45320

PATIENT
  Sex: Male
  Weight: 54 kg

DRUGS (7)
  1. URSO 250 [Concomitant]
     Indication: DRUG-INDUCED LIVER INJURY
     Dosage: 300 MG, UNK
     Route: 048
     Dates: start: 20101218, end: 20110214
  2. PREDNISOLONE [Concomitant]
     Indication: METASTATIC RENAL CELL CARCINOMA
     Dosage: 10 MG, UNK
     Dates: start: 20101209
  3. PIPERACILLIN SODIUM [Concomitant]
     Dosage: 2 G, UNK
     Route: 042
     Dates: start: 20110322, end: 20110328
  4. AFINITOR [Suspect]
     Indication: METASTATIC RENAL CELL CARCINOMA
     Dosage: 10 MG, DAILY
     Route: 048
     Dates: start: 20110107, end: 20110315
  5. COLDRIN [Concomitant]
     Indication: METASTATIC RENAL CELL CARCINOMA
     Dosage: 37.5 MG, UNK
     Route: 048
     Dates: start: 20110106
  6. FAMOTIDINE [Concomitant]
     Indication: GASTRITIS
     Dosage: 20 MG, UNK
     Route: 048
     Dates: start: 20101108
  7. HACHIAZULE [Concomitant]
     Dosage: 6 G, UNK
     Route: 048
     Dates: start: 20110117, end: 20110224

REACTIONS (3)
  - INTERSTITIAL LUNG DISEASE [None]
  - DYSPNOEA [None]
  - DEATH [None]
